FAERS Safety Report 5946287-5 (Version None)
Quarter: 2008Q4

REPORT INFORMATION
  Report Type: 
  Country: None (occurrence: None)
  Receive Date: 20081106
  Receipt Date: 20081022
  Transmission Date: 20090506
  Serious: Yes (Life-Threatening, Hospitalization)
  Sender: FDA-Public Use
  Company Number: DSJ-2008-11462

PATIENT
  Age: 67 Year
  Sex: Male
  Weight: 42 kg

DRUGS (4)
  1. OLMESARTAN MEDOXOMIL [Suspect]
     Indication: DIABETIC NEPHROPATHY
     Dosage: 20 MG (20 MG, 1 IN 1 D), PER ORAL
     Route: 048
     Dates: start: 20080811, end: 20080908
  2. OLMESARTAN MEDOXOMIL [Suspect]
     Indication: HYPERTENSION
     Dosage: 20 MG (20 MG, 1 IN 1 D), PER ORAL
     Route: 048
     Dates: start: 20080811, end: 20080908
  3. AMARYL [Suspect]
     Indication: DIABETES MELLITUS
     Dosage: 1 MG (1 MG, 1 IN 1 D), PER ORAL
     Route: 048
     Dates: end: 20080915
  4. ADALAT CC [Suspect]
     Indication: HYPERTENSION
     Dosage: 40 MG (20 MG, 2 IN 1 D), PER ORAL
     Route: 048

REACTIONS (12)
  - BODY TEMPERATURE INCREASED [None]
  - DEHYDRATION [None]
  - DRUG ERUPTION [None]
  - EFFUSION [None]
  - EOSINOPHILIA [None]
  - HYPOPHAGIA [None]
  - ORAL DISORDER [None]
  - OROPHARYNGEAL PAIN [None]
  - PRURITUS [None]
  - RENAL FAILURE ACUTE [None]
  - SKIN EXFOLIATION [None]
  - TOXIC EPIDERMAL NECROLYSIS [None]
